FAERS Safety Report 10954318 (Version 1)
Quarter: 2015Q1

REPORT INFORMATION
  Report Type: Spontaneous
  Country: US (occurrence: US)
  Receive Date: 20150325
  Receipt Date: 20150325
  Transmission Date: 20150721
  Serious: Yes (Other)
  Sender: FDA-Public Use
  Company Number: US-TAKEDA-2015TUS003574

PATIENT
  Age: 50 Year
  Sex: Male

DRUGS (1)
  1. ENTYVIO [Suspect]
     Active Substance: VEDOLIZUMAB
     Indication: PRODUCT USED FOR UNKNOWN INDICATION
     Dosage: 300 MG, UNK
     Route: 042

REACTIONS (4)
  - Nocardiosis [Not Recovered/Not Resolved]
  - Brain abscess [Not Recovered/Not Resolved]
  - Hepatic cancer [Recovered/Resolved]
  - Lung infection [Not Recovered/Not Resolved]
